FAERS Safety Report 5063261-4 (Version None)
Quarter: 2006Q3

REPORT INFORMATION
  Report Type: 
  Country: None (occurrence: None)
  Receive Date: 20060724
  Receipt Date: 20060724
  Transmission Date: 20061208
  Serious: Yes (Other)
  Sender: FDA-Public Use
  Company Number: None

PATIENT
  Age: 47 Year
  Sex: Male
  Weight: 71.2147 kg

DRUGS (1)
  1. GABAPENTIN [Suspect]
     Indication: NEUROPATHY PERIPHERAL
     Dosage: 3000MG   PER DAY   PO
     Route: 048
     Dates: start: 20041101, end: 20060722

REACTIONS (4)
  - DRUG PRESCRIBING ERROR [None]
  - MORBID THOUGHTS [None]
  - PERSONALITY CHANGE [None]
  - SUICIDAL IDEATION [None]
